FAERS Safety Report 9271668 (Version 1)
Quarter: 2013Q2

REPORT INFORMATION
  Report Type: Spontaneous
  Country: None (occurrence: US)
  Receive Date: 20130506
  Receipt Date: 20130506
  Transmission Date: 20140414
  Serious: Yes (Death)
  Sender: FDA-Public Use
  Company Number: US-COVIDIEN/TYCO HEALTHCARE/MALLINCKRODT-T201204555

PATIENT
  Sex: 0

DRUGS (3)
  1. HYDROCODONE/ACETAMINOPHEN [Suspect]
     Dosage: UNK
  2. HYDROCODONE/ACETAMINOPHEN [Suspect]
     Dosage: UNK
  3. HYDROCODONE/ACETAMINOPHEN [Suspect]
     Dosage: UNK

REACTIONS (4)
  - Accidental exposure to product [Recovered/Resolved]
  - Paranasal sinus discomfort [Recovered/Resolved]
  - Burning sensation [Unknown]
  - Epistaxis [Unknown]
